FAERS Safety Report 20648739 (Version 1)
Quarter: 2022Q1

REPORT INFORMATION
  Report Type: Spontaneous
  Country: US (occurrence: None)
  Receive Date: 20220328
  Receipt Date: 20220328
  Transmission Date: 20220423
  Serious: Yes (Life-Threatening, Hospitalization)
  Sender: FDA-Public Use
  Company Number: None

PATIENT
  Age: 37 Year
  Sex: Male
  Weight: 113.4 kg

DRUGS (1)
  1. CLOZAPINE [Suspect]
     Active Substance: CLOZAPINE
     Indication: Schizophrenia
     Route: 048
     Dates: start: 20220311, end: 20220327

REACTIONS (10)
  - Dyspnoea [None]
  - Palpitations [None]
  - Syncope [None]
  - Sinus tachycardia [None]
  - Pulmonary artery dilatation [None]
  - Pulmonary embolism [None]
  - Troponin increased [None]
  - Electrocardiogram ST-T segment abnormal [None]
  - COVID-19 [None]
  - Thrombosis [None]

NARRATIVE: CASE EVENT DATE: 20220328
